FAERS Safety Report 19938107 (Version 3)
Quarter: 2021Q4

REPORT INFORMATION
  Report Type: Spontaneous
  Country: DE (occurrence: DE)
  Receive Date: 20211011
  Receipt Date: 20211202
  Transmission Date: 20220304
  Serious: Yes (Other)
  Sender: FDA-Public Use
  Company Number: DE-002147023-NVSC2020DE255328

PATIENT
  Sex: Female
  Weight: 46 kg

DRUGS (2)
  1. LETROZOLE [Suspect]
     Active Substance: LETROZOLE
     Indication: Breast cancer metastatic
     Dosage: 2.5 MILLIGRAM, ONCE A DAY, 2.5 MG, QD (LAST DOSE RECEIVED ON 08 SEP 2021)
     Route: 048
     Dates: start: 20200519
  2. KISQALI [Suspect]
     Active Substance: RIBOCICLIB
     Indication: Breast cancer metastatic
     Dosage: 600 MILLIGRAM, ONCE A DAY (SCHEMA 21 DAYS INTAKE, 7 DAYS PAUSE)
     Route: 048
     Dates: start: 20200519, end: 20200908

REACTIONS (5)
  - Transaminases increased [Recovering/Resolving]
  - Thrombocytopenia [Recovering/Resolving]
  - Fatigue [Not Recovered/Not Resolved]
  - Restlessness [Not Recovered/Not Resolved]
  - Hypertension [Recovered/Resolved]

NARRATIVE: CASE EVENT DATE: 20200811
